FAERS Safety Report 10474220 (Version 2)
Quarter: 2014Q3

REPORT INFORMATION
  Report Type: Spontaneous
  Country: US (occurrence: US)
  Receive Date: 20140924
  Receipt Date: 20140924
  Transmission Date: 20150326
  Serious: Yes (Other)
  Sender: FDA-Public Use
  Company Number: US-CELGENE-163-21880-14073590

PATIENT
  Sex: Female
  Weight: 63.56 kg

DRUGS (1)
  1. REVLIMID [Suspect]
     Active Substance: LENALIDOMIDE
     Indication: MYELODYSPLASTIC SYNDROME
     Dosage: 2.5 MILLIGRAM
     Route: 048
     Dates: start: 201404

REACTIONS (4)
  - Dyspnoea [Recovered/Resolved]
  - Dehydration [Recovered/Resolved]
  - Depression [Recovering/Resolving]
  - Cardiac flutter [Recovered/Resolved]

NARRATIVE: CASE EVENT DATE: 2014
